FAERS Safety Report 13975696 (Version 2)
Quarter: 2017Q4

REPORT INFORMATION
  Report Type: Spontaneous
  Country: US (occurrence: US)
  Receive Date: 20170914
  Receipt Date: 20171127
  Transmission Date: 20180321
  Serious: Yes (Other)
  Sender: FDA-Public Use
  Company Number: US-ASTELLAS-2017US018869

PATIENT
  Age: 81 Year
  Sex: Male

DRUGS (1)
  1. XTANDI [Suspect]
     Active Substance: ENZALUTAMIDE
     Indication: PRODUCT USED FOR UNKNOWN INDICATION
     Dosage: UNK UNK, UNKNOWN FREQ.
     Route: 065

REACTIONS (7)
  - Hot flush [Unknown]
  - Weight decreased [Recovered/Resolved]
  - Dysgeusia [Unknown]
  - Fatigue [Unknown]
  - Herpes virus infection [Unknown]
  - Diarrhoea [Unknown]
  - Photophobia [Unknown]

NARRATIVE: CASE EVENT DATE: 20170512
